FAERS Safety Report 22150731 (Version 1)
Quarter: 2023Q1

REPORT INFORMATION
  Report Type: Spontaneous
  Country: FR (occurrence: FR)
  Receive Date: 20230329
  Receipt Date: 20230329
  Transmission Date: 20230417
  Serious: Yes (Life-Threatening, Hospitalization)
  Sender: FDA-Public Use
  Company Number: None

PATIENT
  Age: 40 Year
  Sex: Female

DRUGS (5)
  1. CARBOPLATIN [Suspect]
     Active Substance: CARBOPLATIN
     Indication: Breast cancer
     Dates: start: 20221018, end: 20230118
  2. CYCLOPHOSPHAMIDE [Suspect]
     Active Substance: CYCLOPHOSPHAMIDE
     Indication: Breast cancer
     Dates: start: 20230125, end: 20230125
  3. EPIRUBICIN [Suspect]
     Active Substance: EPIRUBICIN
     Indication: Breast cancer
     Dates: start: 20230125, end: 20230125
  4. PEMBROLIZUMAB [Suspect]
     Active Substance: PEMBROLIZUMAB
     Indication: Breast cancer
     Dates: start: 20221018, end: 20230125
  5. TAXOL [Suspect]
     Active Substance: PACLITAXEL
     Indication: Breast cancer
     Dates: start: 20221018, end: 20230118

REACTIONS (2)
  - Lichenoid keratosis [Recovering/Resolving]
  - Dermatitis bullous [Recovering/Resolving]

NARRATIVE: CASE EVENT DATE: 20230115
